FAERS Safety Report 17399074 (Version 1)
Quarter: 2020Q1

REPORT INFORMATION
  Report Type: Report from Study
  Country: None (occurrence: CA)
  Receive Date: 20200210
  Receipt Date: 20200210
  Transmission Date: 20200409
  Serious: Yes (Hospitalization, Other)
  Sender: FDA-Public Use
  Company Number: CA-ABBVIE-19K-028-2626571-00

PATIENT
  Sex: Female

DRUGS (1)
  1. HUMIRA [Suspect]
     Active Substance: ADALIMUMAB
     Indication: CROHN^S DISEASE
     Route: 058
     Dates: start: 20080416

REACTIONS (14)
  - Hypertrophy [Unknown]
  - Gallbladder disorder [Unknown]
  - Vomiting [Not Recovered/Not Resolved]
  - Cholecystitis acute [Unknown]
  - Surgery [Unknown]
  - Gastrointestinal sounds abnormal [Unknown]
  - Cholelithiasis [Not Recovered/Not Resolved]
  - Postoperative adhesion [Unknown]
  - Abdominal distension [Not Recovered/Not Resolved]
  - Nausea [Not Recovered/Not Resolved]
  - Intestinal obstruction [Unknown]
  - Abdominal pain [Not Recovered/Not Resolved]
  - Renal cyst [Unknown]
  - Abdominal discomfort [Not Recovered/Not Resolved]

NARRATIVE: CASE EVENT DATE: 2019
